FAERS Safety Report 12080070 (Version 2)
Quarter: 2016Q1

REPORT INFORMATION
  Report Type: Spontaneous
  Country: SK (occurrence: SK)
  Receive Date: 20160216
  Receipt Date: 20160229
  Transmission Date: 20160526
  Serious: No
  Sender: FDA-Public Use
  Company Number: SK-PFIZER INC-2016080292

PATIENT
  Age: 59 Year
  Sex: Male

DRUGS (1)
  1. SUNITINIB MALATE. [Suspect]
     Active Substance: SUNITINIB MALATE
     Indication: METASTATIC RENAL CELL CARCINOMA
     Dosage: 50 MG, DAILY FOR 4 WEEKS AND PAUSE FOR 2 WEEKS
     Dates: start: 200905

REACTIONS (1)
  - Thrombocytopenia [Unknown]
